FAERS Safety Report 10130161 (Version 1)
Quarter: 2014Q2

REPORT INFORMATION
  Report Type: Spontaneous
  Country: US (occurrence: US)
  Receive Date: 20140428
  Receipt Date: 20140428
  Transmission Date: 20141212
  Serious: No
  Sender: FDA-Public Use
  Company Number: US-PFIZER INC-2014114838

PATIENT
  Age: 85 Year
  Sex: Female

DRUGS (2)
  1. DETROL LA [Suspect]
     Indication: URINARY INCONTINENCE
     Dosage: 4 MG, UNK
  2. DETROL LA [Suspect]
     Dosage: 8 MG, UNK

REACTIONS (2)
  - Hearing impaired [Unknown]
  - Drug ineffective [Unknown]
